FAERS Safety Report 8473943-X (Version None)
Quarter: 2012Q2

REPORT INFORMATION
  Report Type: 
  Country: None (occurrence: None)
  Receive Date: 20120628
  Receipt Date: 20120316
  Transmission Date: 20120825
  Serious: Yes (Death)
  Sender: FDA-Public Use
  Company Number: US-MYLANLABS-2012S1003590

PATIENT
  Age: 66 Year
  Sex: Female

DRUGS (15)
  1. DUONEB [Concomitant]
     Dosage: PRN
  2. TAMSULOSIN HCL [Concomitant]
  3. TOPRAZOL [Concomitant]
  4. FUROSEMIDE [Concomitant]
  5. CLOZAPINE [Suspect]
  6. NITROFURANTOIN [Concomitant]
  7. LEVOTHYROXINE [Concomitant]
  8. DEPAKOTE [Concomitant]
  9. DIVALPROEX SODIUM [Concomitant]
  10. LOSARTAN POTASSIUM [Concomitant]
  11. VISTARIL [Concomitant]
     Dosage: PRN
  12. DIAZEPAM [Concomitant]
  13. TRAMADOL HCL [Concomitant]
  14. METOCLOPRAMIDE [Concomitant]
  15. OLANZAPINE [Concomitant]

REACTIONS (1)
  - DYSPNOEA [None]
